FAERS Safety Report 8891118 (Version 1)
Quarter: 2012Q4

REPORT INFORMATION
  Report Type: 
  Country: US (occurrence: US)
  Receive Date: 20121107
  Receipt Date: 20121107
  Transmission Date: 20130627
  Serious: No
  Sender: FDA-Public Use
  Company Number: US-ASTRAZENECA-2012SE52236

PATIENT
  Age: 75 Year
  Sex: Female

DRUGS (3)
  1. CRESTOR [Suspect]
     Route: 048
  2. ZOCOR [Concomitant]
  3. OTHER CHOLESTEROL MEDICATIONS [Concomitant]

REACTIONS (3)
  - Diabetes mellitus [Unknown]
  - Blood cholesterol increased [Unknown]
  - Drug dose omission [Unknown]
